FAERS Safety Report 5556328-5 (Version None)
Quarter: 2007Q4

REPORT INFORMATION
  Report Type: 
  Country: None (occurrence: None)
  Receive Date: 20071213
  Receipt Date: 20070831
  Transmission Date: 20080405
  Serious: No
  Sender: FDA-Public Use
  Company Number: US-AMGEN-KDL239542

PATIENT
  Sex: Female

DRUGS (5)
  1. ENBREL [Suspect]
     Indication: RHEUMATOID ARTHRITIS
     Route: 058
     Dates: start: 20060404
  2. MOBIC [Suspect]
  3. LUNESTA [Suspect]
  4. MEDROL [Concomitant]
  5. METHOTREXATE [Concomitant]

REACTIONS (9)
  - BREAST PAIN [None]
  - CATARACT [None]
  - DRUG ERUPTION [None]
  - IMPAIRED HEALING [None]
  - INJECTION SITE PAIN [None]
  - LETHARGY [None]
  - MUSCULOSKELETAL PAIN [None]
  - PAIN IN EXTREMITY [None]
  - URINE OUTPUT INCREASED [None]
